FAERS Safety Report 5049025-6 (Version None)
Quarter: 2006Q3

REPORT INFORMATION
  Report Type: 
  Country: None (occurrence: None)
  Receive Date: 20060712
  Receipt Date: 20060113
  Transmission Date: 20061208
  Serious: No
  Sender: FDA-Public Use
  Company Number: US-GLAXOSMITHKLINE-A0589212A

PATIENT
  Age: 48 Year
  Sex: Female

DRUGS (5)
  1. IMITREX [Suspect]
     Indication: MIGRAINE
     Dosage: 500MG PER DAY
     Route: 048
     Dates: start: 20040101
  2. IMITREX [Suspect]
     Route: 058
  3. ACTONEL [Concomitant]
  4. FIORICET [Concomitant]
  5. HORMONES [Concomitant]

REACTIONS (3)
  - DRUG INEFFECTIVE [None]
  - OVERDOSE [None]
  - TREATMENT NONCOMPLIANCE [None]
